FAERS Safety Report 8820468 (Version 1)
Quarter: 2012Q4

REPORT INFORMATION
  Report Type: 
  Country: US (occurrence: US)
  Receive Date: 20121002
  Receipt Date: 20121002
  Transmission Date: 20130627
  Serious: Yes (Hospitalization, Disabling, Other)
  Sender: FDA-Public Use
  Company Number: US-009507513-1103USA00845

PATIENT

DRUGS (8)
  1. FOSAMAX [Suspect]
     Indication: OSTEOPOROSIS
     Dosage: 10 mg, qd
     Route: 048
     Dates: start: 199805, end: 200010
  2. FOSAMAX [Suspect]
     Dosage: 70 mg, QW
     Route: 048
     Dates: start: 200011, end: 200805
  3. FOSAMAX [Suspect]
     Dosage: 70 mg, QW
     Route: 048
     Dates: start: 200802
  4. FOSAMAX [Suspect]
     Indication: OSTEOPOROSIS
     Dosage: 70 mg, QW
     Route: 048
     Dates: start: 200806, end: 201004
  5. ALENDRONATE SODIUM [Suspect]
     Dosage: 70 mg, qw
     Route: 048
  6. CALCIUM (UNSPECIFIED) (+) VITAMIN D (UNSPECIFIED) [Concomitant]
     Dosage: 630 mg, UNK
  7. GLUCOSAMINE [Concomitant]
     Dates: start: 199810, end: 199904
  8. HORMONES (UNSPECIFIED) [Concomitant]
     Dates: start: 199212, end: 2001

REACTIONS (38)
  - Femur fracture [Not Recovered/Not Resolved]
  - Device failure [Unknown]
  - Breast cancer [Unknown]
  - Low turnover osteopathy [Not Recovered/Not Resolved]
  - Dental caries [Unknown]
  - Dental caries [Unknown]
  - Tooth disorder [Unknown]
  - Radius fracture [Unknown]
  - Supraventricular tachycardia [Unknown]
  - Adverse event [Unknown]
  - Osteoarthritis [Unknown]
  - Haemorrhoids [Unknown]
  - Rhinorrhoea [Unknown]
  - Fibrocystic breast disease [Unknown]
  - Large intestine polyp [Unknown]
  - Rectal polyp [Unknown]
  - Colon adenoma [Unknown]
  - Chronic obstructive pulmonary disease [Unknown]
  - Mastoid disorder [Unknown]
  - Ulna fracture [Unknown]
  - Tooth extraction [Unknown]
  - Tooth disorder [Unknown]
  - Tooth disorder [Unknown]
  - Tooth disorder [Unknown]
  - Tooth disorder [Unknown]
  - Tooth disorder [Unknown]
  - Dental caries [Unknown]
  - Tooth disorder [Unknown]
  - Tooth disorder [Unknown]
  - Syncope [Unknown]
  - Fatigue [Unknown]
  - Cough [Unknown]
  - Depression [Unknown]
  - Sinus headache [Unknown]
  - Pneumonia [Unknown]
  - Neck pain [Unknown]
  - Back pain [Unknown]
  - Gastrooesophageal reflux disease [Unknown]
